FAERS Safety Report 6664043-X (Version None)
Quarter: 2010Q2

REPORT INFORMATION
  Report Type: 
  Country: None (occurrence: None)
  Receive Date: 20100401
  Receipt Date: 20100325
  Transmission Date: 20101027
  Serious: Yes (Other)
  Sender: FDA-Public Use
  Company Number: A0851994A

PATIENT
  Sex: Male

DRUGS (2)
  1. PAXIL [Suspect]
     Indication: DEPRESSION
     Route: 048
  2. WELLBUTRIN [Suspect]
     Dates: start: 20100304

REACTIONS (10)
  - DEPENDENCE [None]
  - DEPRESSION [None]
  - DRUG INEFFECTIVE [None]
  - FEELING ABNORMAL [None]
  - HEADACHE [None]
  - LIBIDO DECREASED [None]
  - SENSORY DISTURBANCE [None]
  - SUICIDAL IDEATION [None]
  - WEIGHT INCREASED [None]
  - WITHDRAWAL SYNDROME [None]
